FAERS Safety Report 8904289 (Version 1)
Quarter: 2012Q4

REPORT INFORMATION
  Report Type: 
  Country: US (occurrence: US)
  Receive Date: 20121112
  Receipt Date: 20121112
  Transmission Date: 20130627
  Serious: Yes (Other)
  Sender: FDA-Public Use
  Company Number: US-ASTRAZENECA-2012SE83680

PATIENT
  Age: 57 Year
  Sex: Female

DRUGS (3)
  1. CRESTOR [Suspect]
     Indication: DIABETES MELLITUS
     Route: 048
  2. CRESTOR [Suspect]
     Indication: DIABETES MELLITUS
     Route: 048
  3. COQ10 [Concomitant]
     Indication: DIABETES MELLITUS

REACTIONS (5)
  - Rhabdomyolysis [Unknown]
  - Oedema peripheral [Unknown]
  - Urine output decreased [Unknown]
  - Pyrexia [Unknown]
  - Myalgia [Unknown]
